FAERS Safety Report 20030159 (Version 1)
Quarter: 2021Q4

REPORT INFORMATION
  Report Type: Report from Study
  Country: US (occurrence: US)
  Receive Date: 20211103
  Receipt Date: 20211103
  Transmission Date: 20220303
  Serious: Yes (Other)
  Sender: FDA-Public Use
  Company Number: US-TAKEDA-2021TUS066339

PATIENT
  Sex: Female

DRUGS (1)
  1. ECALLANTIDE [Suspect]
     Active Substance: ECALLANTIDE
     Indication: Product used for unknown indication
     Dosage: 30 MILLIGRAM, PRN
     Route: 058

REACTIONS (2)
  - COVID-19 [Recovering/Resolving]
  - Gastroenteritis viral [Recovering/Resolving]
